FAERS Safety Report 4772458-X (Version None)
Quarter: 2005Q3

REPORT INFORMATION
  Report Type: 
  Country: None (occurrence: None)
  Receive Date: 20050919
  Receipt Date: 20041213
  Transmission Date: 20060218
  Serious: Yes (Other)
  Sender: FDA-Public Use
  Company Number: BE-NOVOPROD-241187

PATIENT
  Age: 55 Year
  Sex: Male
  Weight: 126 kg

DRUGS (5)
  1. NOVOMIX 30 PENFILL [Suspect]
     Indication: DIABETES MELLITUS INSULIN-DEPENDENT
     Dosage: UNK IU, UNK
     Dates: start: 20041013, end: 20050501
  2. NOVONORM [Concomitant]
     Indication: INSULIN-REQUIRING TYPE II DIABETES MELLITUS
     Dosage: 3X6 MG PER DAY
  3. AVANDIA [Concomitant]
     Dosage: 8 MG, QD
  4. DIAMOX                                  /CAN/ [Concomitant]
  5. LASIX [Concomitant]

REACTIONS (3)
  - GLYCOSYLATED HAEMOGLOBIN INCREASED [None]
  - MACULAR OEDEMA [None]
  - VISUAL DISTURBANCE [None]
